FAERS Safety Report 11933327 (Version 2)
Quarter: 2016Q1

REPORT INFORMATION
  Report Type: Report from Study
  Country: FR (occurrence: FR)
  Receive Date: 20160121
  Receipt Date: 20160128
  Transmission Date: 20160526
  Serious: Yes (Death)
  Sender: FDA-Public Use
  Company Number: FR-ACTELION-A-CH2012-74939

PATIENT
  Age: 84 Year
  Sex: Female

DRUGS (11)
  1. APROVEL [Concomitant]
     Active Substance: IRBESARTAN
  2. KARDEGIC [Concomitant]
     Active Substance: ASPIRIN LYSINE
  3. TRACLEER [Suspect]
     Active Substance: BOSENTAN
     Indication: SCLERODERMA ASSOCIATED DIGITAL ULCER
     Dosage: 62.5 MG, UNK
     Route: 048
  4. HAVLANE [Concomitant]
     Active Substance: LOPRAZOLAM
  5. LOGIRENE [Concomitant]
  6. TRACLEER [Suspect]
     Active Substance: BOSENTAN
     Dosage: 125 MG, OD
     Route: 048
  7. TRACLEER [Suspect]
     Active Substance: BOSENTAN
     Dosage: 62.5 MG, BID
     Route: 048
     Dates: start: 20080215, end: 20080515
  8. TRACLEER [Suspect]
     Active Substance: BOSENTAN
     Dosage: 125 MG, BID
     Route: 048
     Dates: start: 20080516
  9. TRAMADOL. [Concomitant]
     Active Substance: TRAMADOL
  10. DIOSMINE [Concomitant]
     Active Substance: HESPERIDIN
  11. PARACETAMOL [Concomitant]
     Active Substance: ACETAMINOPHEN

REACTIONS (4)
  - Scleroderma [Fatal]
  - Arterial disorder [Fatal]
  - Disease progression [Fatal]
  - Anaemia [Not Recovered/Not Resolved]

NARRATIVE: CASE EVENT DATE: 20120723
